FAERS Safety Report 8810705 (Version 1)
Quarter: 2012Q4

REPORT INFORMATION
  Report Type: 
  Country: US (occurrence: US)
  Receive Date: 20120927
  Receipt Date: 20120927
  Transmission Date: 20130627
  Serious: No
  Sender: FDA-Public Use
  Company Number: US-PFIZER INC-2012238321

PATIENT
  Age: 35 Year
  Sex: Female
  Weight: 67.12 kg

DRUGS (8)
  1. LYRICA [Suspect]
     Indication: FIBROMYALGIA
     Dosage: UNK, 2x/day
     Route: 048
     Dates: start: 2008, end: 2008
  2. SYNTHROID [Concomitant]
     Dosage: 125 ug, UNK
  3. HYDROCODONE W/ACETAMINOPHEN [Concomitant]
     Dosage: 10/500 mg, UNK
  4. LEXAPRO [Concomitant]
     Dosage: 40 mg, UNK
  5. TOPAMAX [Concomitant]
     Dosage: UNK
  6. METFORMIN [Concomitant]
     Dosage: UNK
  7. VITAMIN D [Concomitant]
     Dosage: UNK
  8. VYVANSE [Concomitant]
     Dosage: UNK

REACTIONS (1)
  - Weight increased [Unknown]
